FAERS Safety Report 6245127-7 (Version None)
Quarter: 2009Q2

REPORT INFORMATION
  Report Type: 
  Country: None (occurrence: None)
  Receive Date: 20090623
  Receipt Date: 20090623
  Transmission Date: 20091009
  Serious: Yes (Other)
  Sender: FDA-Public Use
  Company Number: None

PATIENT
  Age: 33 Year
  Sex: Female
  Weight: 104.3273 kg

DRUGS (1)
  1. FAMCICLOVIR [Suspect]
     Indication: ORAL HERPES
     Dosage: 3 TABLETS PER EPISODE PO
     Route: 048
     Dates: start: 20090401, end: 20090620

REACTIONS (2)
  - HYPERTENSION [None]
  - PALPITATIONS [None]
